FAERS Safety Report 6337034-6 (Version None)
Quarter: 2009Q3

REPORT INFORMATION
  Report Type: 
  Country: None (occurrence: None)
  Receive Date: 20090831
  Receipt Date: 20090609
  Transmission Date: 20100115
  Serious: Yes (Other)
  Sender: FDA-Public Use
  Company Number: GXBR2009US01732

PATIENT
  Sex: Female

DRUGS (2)
  1. BENAZEPRIL HYDROCHLORIDE [Suspect]
  2. COREG [Suspect]

REACTIONS (4)
  - ANXIETY [None]
  - ATRIAL FIBRILLATION [None]
  - FATIGUE [None]
  - OEDEMA PERIPHERAL [None]
